FAERS Safety Report 6914392-2 (Version None)
Quarter: 2010Q3

REPORT INFORMATION
  Report Type: 
  Country: None (occurrence: None)
  Receive Date: 20100805
  Receipt Date: 20100805
  Transmission Date: 20110219
  Serious: Yes (Hospitalization)
  Sender: FDA-Public Use
  Company Number: None

PATIENT
  Age: 59 Year
  Sex: Male
  Weight: 103.4201 kg

DRUGS (2)
  1. LEVAQUIN [Suspect]
     Indication: HAEMATOMA
     Dosage: 500 MG DAILY PO
     Route: 048
     Dates: start: 20100725, end: 20100730
  2. LEVAQUIN [Suspect]
     Indication: IMPLANTABLE DEFIBRILLATOR INSERTION
     Dosage: 500 MG DAILY PO
     Route: 048
     Dates: start: 20100725, end: 20100730

REACTIONS (3)
  - ATRIAL FIBRILLATION [None]
  - ERYTHEMA [None]
  - PAIN IN EXTREMITY [None]
